FAERS Safety Report 4819680-1 (Version None)
Quarter: 2005Q4

REPORT INFORMATION
  Report Type: 
  Country: None (occurrence: None)
  Receive Date: 20051102
  Receipt Date: 20051102
  Transmission Date: 20060501
  Serious: Yes (Hospitalization)
  Sender: FDA-Public Use
  Company Number: None

PATIENT

DRUGS (2)
  1. BUPROPRION HCL [Suspect]
     Indication: DEPRESSION
     Dosage: 150 MG
     Dates: start: 20050301, end: 20051001
  2. GRISEOFULVIN [Suspect]
     Dosage: 500 MG
     Dates: start: 20050701, end: 20051001

REACTIONS (2)
  - DEHYDRATION [None]
  - MENTAL STATUS CHANGES [None]
